FAERS Safety Report 5565015-9 (Version None)
Quarter: 2007Q4

REPORT INFORMATION
  Report Type: 
  Country: None (occurrence: None)
  Receive Date: 20071212
  Receipt Date: 20071126
  Transmission Date: 20080405
  Serious: Yes (Hospitalization)
  Sender: FDA-Public Use
  Company Number: S07-ITA-05740-01

PATIENT
  Age: 81 Year
  Sex: Female

DRUGS (4)
  1. CITALOPRAM HYDROBROMIDE [Suspect]
     Dates: start: 20070101, end: 20070712
  2. AZILECT [Suspect]
     Indication: PARKINSON'S DISEASE
     Dosage: 1 MG QD PO
     Route: 048
     Dates: start: 20070512, end: 20070712
  3. MADOPAR (LEVODOPA/BENSERAZIDE) [Suspect]
     Indication: PARKINSON'S DISEASE
     Dosage: 0.75 TABLET QID PO
     Route: 048
  4. MADOPAR (LEVODOPA/BENSERAZIDE) [Suspect]
     Indication: PARKINSON'S DISEASE
     Dosage: 0.75 TABLET TID PO
     Route: 048

REACTIONS (3)
  - HYPERTENSION [None]
  - ORTHOSTATIC HYPOTENSION [None]
  - SYNCOPE [None]
